FAERS Safety Report 19108257 (Version 1)
Quarter: 2021Q2

REPORT INFORMATION
  Report Type: Spontaneous
  Country: IT (occurrence: IT)
  Receive Date: 20210408
  Receipt Date: 20210408
  Transmission Date: 20210717
  Serious: Yes (Hospitalization)
  Sender: FDA-Public Use
  Company Number: IT-SUN PHARMACEUTICAL INDUSTRIES LTD-2021R1-289853

PATIENT
  Age: 74 Year
  Sex: Female

DRUGS (10)
  1. TRAZODONE [Suspect]
     Active Substance: TRAZODONE HYDROCHLORIDE
     Indication: EPILEPSY
     Dosage: 60 MILLIGRAM PER MILLITER 4 DROPS
     Route: 065
  2. TRAZODONE [Interacting]
     Active Substance: TRAZODONE HYDROCHLORIDE
     Indication: COGNITIVE DISORDER
  3. WARFARIN [Interacting]
     Active Substance: WARFARIN
     Indication: ATRIAL FIBRILLATION
     Dosage: 67 MILLIGRAM, WEEKLY
     Route: 048
  4. WARFARIN [Interacting]
     Active Substance: WARFARIN
     Dosage: 15 MILLIGRAM, DAILY
     Route: 048
  5. WARFARIN [Interacting]
     Active Substance: WARFARIN
     Indication: MITRAL VALVE DISEASE
     Dosage: 40 MILLIGRAM, WEEKLY
     Route: 048
  6. WARFARIN [Interacting]
     Active Substance: WARFARIN
     Dosage: 90 MILLIGRAM, WEEKLY
     Route: 048
  7. PHENOBARBITAL. [Interacting]
     Active Substance: PHENOBARBITAL
     Indication: COGNITIVE DISORDER
  8. PHENOBARBITAL. [Interacting]
     Active Substance: PHENOBARBITAL
     Indication: EPILEPSY
     Dosage: 100 MILLIGRAM
     Route: 065
  9. WARFARIN [Interacting]
     Active Substance: WARFARIN
     Indication: DIABETES MELLITUS
     Dosage: 85 MILLIGRAM, WEEKLY
     Route: 048
  10. WARFARIN [Interacting]
     Active Substance: WARFARIN
     Dosage: 105 MILLIGRAM, WEEKLY
     Route: 048

REACTIONS (3)
  - Drug resistance [Unknown]
  - Cholecystitis [Unknown]
  - Drug interaction [Unknown]
